FAERS Safety Report 24645625 (Version 2)
Quarter: 2024Q4

REPORT INFORMATION
  Report Type: Spontaneous
  Country: GR (occurrence: GR)
  Receive Date: 20241121
  Receipt Date: 20241204
  Transmission Date: 20250114
  Serious: Yes (Other)
  Sender: ADVANZ PHARMA
  Company Number: GR-SANOFI-02298095

PATIENT

DRUGS (1)
  1. ALFUZOSIN [Suspect]
     Active Substance: ALFUZOSIN
     Indication: Product used for unknown indication
     Dosage: UNK (XATRAL OD) (PROLONGED-RELEASE TABLET)

REACTIONS (3)
  - Cataract [Unknown]
  - Lacrimation increased [Recovered/Resolved]
  - Rhinitis [Recovered/Resolved]
